FAERS Safety Report 22145499 (Version 1)
Quarter: 2023Q1

REPORT INFORMATION
  Report Type: Spontaneous
  Country: NL (occurrence: NL)
  Receive Date: 20230328
  Receipt Date: 20230328
  Transmission Date: 20230417
  Serious: Yes (Hospitalization)
  Sender: FDA-Public Use
  Company Number: NL-ALKEM LABORATORIES LIMITED-NL-ALKEM-2022-15106

PATIENT
  Age: 72 Year
  Sex: Male

DRUGS (1)
  1. MORPHINE SULFATE [Suspect]
     Active Substance: MORPHINE SULFATE
     Indication: Postoperative analgesia
     Dosage: 4000 MICROGRAM
     Route: 037

REACTIONS (2)
  - Hypotension [Recovered/Resolved]
  - Product administration error [Unknown]
